FAERS Safety Report 19482788 (Version 1)
Quarter: 2021Q3

REPORT INFORMATION
  Report Type: Spontaneous
  Country: US (occurrence: US)
  Receive Date: 20210701
  Receipt Date: 20210701
  Transmission Date: 20211014
  Serious: No
  Sender: FDA-Public Use
  Company Number: US-ASTRAZENECA-2021A497959

PATIENT
  Age: 503 Month
  Sex: Female
  Weight: 134.3 kg

DRUGS (3)
  1. SPIRIVA [Concomitant]
     Active Substance: TIOTROPIUM BROMIDE MONOHYDRATE
  2. ALBUTEROL. [Concomitant]
     Active Substance: ALBUTEROL
  3. BRILINTA [Suspect]
     Active Substance: TICAGRELOR
     Indication: MYOCARDIAL INFARCTION
     Route: 048
     Dates: start: 20190226, end: 20210312

REACTIONS (2)
  - Dyspnoea [Not Recovered/Not Resolved]
  - Respiration abnormal [Recovering/Resolving]
